FAERS Safety Report 8772141 (Version 2)
Quarter: 2015Q2

REPORT INFORMATION
  Report Type: Report from Study
  Country: US (occurrence: US)
  Receive Date: 20120905
  Receipt Date: 20150624
  Transmission Date: 20150821
  Serious: Yes (Death)
  Sender: FDA-Public Use
  Company Number: US-ROCHE-1114515

PATIENT
  Sex: Male

DRUGS (18)
  1. MORPHINE [Concomitant]
     Active Substance: MORPHINE
  2. TARCEVA [Suspect]
     Active Substance: ERLOTINIB HYDROCHLORIDE
     Indication: PANCREATIC CARCINOMA
     Route: 048
  3. DECADRON [Concomitant]
     Active Substance: DEXAMETHASONE
     Route: 065
  4. BENADRYL [Concomitant]
     Active Substance: DIPHENHYDRAMINE HYDROCHLORIDE
     Route: 065
  5. ARANESP [Concomitant]
     Active Substance: DARBEPOETIN ALFA
     Route: 058
  6. ALOXI [Concomitant]
     Active Substance: PALONOSETRON HYDROCHLORIDE
     Route: 065
  7. DEXAMETHASONE. [Concomitant]
     Active Substance: DEXAMETHASONE
     Route: 065
  8. OXYCONTIN [Concomitant]
     Active Substance: OXYCODONE HYDROCHLORIDE
     Route: 065
  9. OXYCONTIN [Concomitant]
     Active Substance: OXYCODONE HYDROCHLORIDE
     Route: 065
  10. AVASTIN [Suspect]
     Active Substance: BEVACIZUMAB
     Route: 042
  11. GEMZAR [Concomitant]
     Active Substance: GEMCITABINE HYDROCHLORIDE
     Route: 042
  12. GEMZAR [Concomitant]
     Active Substance: GEMCITABINE HYDROCHLORIDE
     Route: 042
  13. NEULASTA [Concomitant]
     Active Substance: PEGFILGRASTIM
     Route: 065
  14. ARANESP [Concomitant]
     Active Substance: DARBEPOETIN ALFA
     Route: 058
  15. CURCUMIN [Concomitant]
     Active Substance: CURCUMIN
     Route: 065
  16. EPOGEN [Concomitant]
     Active Substance: ERYTHROPOIETIN
     Dosage: 40K
     Route: 065
  17. GEMZAR [Concomitant]
     Active Substance: GEMCITABINE HYDROCHLORIDE
     Route: 042
  18. AVASTIN [Suspect]
     Active Substance: BEVACIZUMAB
     Indication: PRODUCT USED FOR UNKNOWN INDICATION
     Route: 042

REACTIONS (26)
  - Death [Fatal]
  - Abdominal pain [Unknown]
  - Diarrhoea [Recovered/Resolved]
  - Musculoskeletal discomfort [Unknown]
  - Neoplasm [Unknown]
  - Gingival pain [Unknown]
  - Arthralgia [Unknown]
  - Nausea [Unknown]
  - Abdominal discomfort [Unknown]
  - Tumour marker increased [Unknown]
  - Abdominal tenderness [Unknown]
  - Stomatitis [Recovering/Resolving]
  - Flatulence [Unknown]
  - Musculoskeletal pain [Unknown]
  - Memory impairment [Unknown]
  - Night sweats [Unknown]
  - Wheezing [Unknown]
  - Off label use [Unknown]
  - Haemorrhoidal haemorrhage [Unknown]
  - Abdominal distension [Unknown]
  - Hyperhidrosis [Unknown]
  - Somnolence [Unknown]
  - Asthenia [Unknown]
  - Constipation [Unknown]
  - Alopecia [Unknown]
  - Rash [Recovered/Resolved]
